FAERS Safety Report 5402722-2 (Version None)
Quarter: 2007Q3

REPORT INFORMATION
  Report Type: 
  Country: None (occurrence: None)
  Receive Date: 20070801
  Receipt Date: 20070726
  Transmission Date: 20080115
  Serious: Yes (Other)
  Sender: FDA-Public Use
  Company Number: US-ASTRAZENECA-2007UW18123

PATIENT
  Age: 72 Year
  Sex: Female
  Weight: 59.1 kg

DRUGS (3)
  1. TOPROL-XL [Suspect]
     Indication: PROPHYLAXIS
     Route: 048
  2. DARVOCET [Concomitant]
     Route: 048
  3. LASIX [Concomitant]
     Route: 048

REACTIONS (5)
  - BLINDNESS TRANSIENT [None]
  - GAIT DISTURBANCE [None]
  - HEADACHE [None]
  - HYPERSENSITIVITY [None]
  - ILL-DEFINED DISORDER [None]
